FAERS Safety Report 7520075-0 (Version None)
Quarter: 2011Q2

REPORT INFORMATION
  Report Type: 
  Country: None (occurrence: None)
  Receive Date: 20110602
  Receipt Date: 20110519
  Transmission Date: 20111010
  Serious: Yes (Other)
  Sender: FDA-Public Use
  Company Number: US-CELGENEUS-163-21880-11052548

PATIENT
  Age: 68 Year
  Sex: Male
  Weight: 92.8 kg

DRUGS (9)
  1. PREDNISONE [Suspect]
     Dosage: 5 MILLIGRAM
     Route: 048
     Dates: start: 20110425
  2. REVLIMID [Suspect]
     Indication: PROSTATE CANCER
     Dosage: 25 MILLIGRAM
     Route: 048
     Dates: start: 20091019
  3. BEVACIZUMAB [Suspect]
     Indication: PROSTATE CANCER
     Dosage: 15 MILLIGRAM/KILOGRAM
     Route: 051
     Dates: start: 20091019
  4. BEVACIZUMAB [Suspect]
     Dosage: 15 MILLIGRAM/KILOGRAM
     Route: 051
     Dates: start: 20110425
  5. REVLIMID [Suspect]
     Dosage: 25 MILLIGRAM
     Route: 048
     Dates: start: 20110425
  6. DOCETAXEL [Suspect]
     Indication: PROSTATE CANCER
     Dosage: 75 MILLIGRAM/SQ. METER
     Route: 051
     Dates: start: 20091019
  7. ZOLEDRONIC ACID [Suspect]
     Route: 065
  8. DOCETAXEL [Suspect]
     Dosage: 75 MILLIGRAM/SQ. METER
     Route: 051
     Dates: start: 20110425
  9. PREDNISONE [Suspect]
     Indication: PROSTATE CANCER
     Dosage: 5 MILLIGRAM
     Route: 048
     Dates: start: 20091019

REACTIONS (1)
  - OSTEONECROSIS OF JAW [None]
